FAERS Safety Report 18042615 (Version 1)
Quarter: 2020Q3

REPORT INFORMATION
  Report Type: Report from Study
  Country: US (occurrence: US)
  Receive Date: 20200720
  Receipt Date: 20200720
  Transmission Date: 20201103
  Serious: Yes (Other)
  Sender: FDA-Public Use
  Company Number: US-INCYTE CORPORATION-2020IN005717

PATIENT

DRUGS (1)
  1. PEMIGATINIB [Suspect]
     Active Substance: PEMIGATINIB
     Indication: CHOLANGIOCARCINOMA
     Dosage: 13.5 MILLIGRAM, QAM W/ FOOD?14 DAYS ON WITH 7 DAYS OFF
     Route: 048
     Dates: start: 20200602

REACTIONS (8)
  - Dry mouth [Unknown]
  - Hyperaesthesia teeth [Unknown]
  - Nausea [Unknown]
  - Constipation [Recovered/Resolved]
  - Vomiting [Unknown]
  - Terminal state [Unknown]
  - Diarrhoea [Recovered/Resolved]
  - Dry eye [Unknown]

NARRATIVE: CASE EVENT DATE: 20200615
